FAERS Safety Report 4377003-9 (Version None)
Quarter: 2004Q2

REPORT INFORMATION
  Report Type: 
  Country: None (occurrence: None)
  Receive Date: 20040614
  Receipt Date: 20031121
  Transmission Date: 20050107
  Serious: Yes (Hospitalization)
  Sender: FDA-Public Use
  Company Number: US-MERCK-0311USA02536

PATIENT
  Age: 49 Year
  Sex: Male
  Weight: 118 kg

DRUGS (7)
  1. DARVOCET-N 100 [Concomitant]
     Route: 065
  2. AVALIDE [Concomitant]
     Route: 065
  3. ZESTRIL [Concomitant]
     Route: 065
  4. VIOXX [Suspect]
     Indication: ARTHRALGIA
     Route: 048
     Dates: start: 20011201
  5. VIOXX [Suspect]
     Route: 048
     Dates: end: 20021109
  6. VIOXX [Suspect]
     Indication: BACK PAIN
     Route: 048
     Dates: start: 20011201
  7. VIOXX [Suspect]
     Route: 048
     Dates: end: 20021109

REACTIONS (15)
  - ANXIETY [None]
  - ATHEROSCLEROSIS [None]
  - BLOOD CHOLESTEROL INCREASED [None]
  - CEREBROVASCULAR ACCIDENT [None]
  - DEPRESSION [None]
  - DRUG HYPERSENSITIVITY [None]
  - GASTROOESOPHAGEAL REFLUX DISEASE [None]
  - GOUT [None]
  - HIGH DENSITY LIPOPROTEIN DECREASED [None]
  - HYPERTENSION [None]
  - LOW DENSITY LIPOPROTEIN INCREASED [None]
  - MITRAL VALVE PROLAPSE [None]
  - MYOCARDIAL INFARCTION [None]
  - NEPHROLITHIASIS [None]
  - RENAL FUNCTION TEST ABNORMAL [None]
